FAERS Safety Report 9964227 (Version 1)
Quarter: 2014Q1

REPORT INFORMATION
  Report Type: Spontaneous
  Country: GR (occurrence: GR)
  Receive Date: 20140305
  Receipt Date: 20140305
  Transmission Date: 20141002
  Serious: Yes (Other)
  Sender: FDA-Public Use
  Company Number: GR-MERCK-1403GRC000517

PATIENT
  Age: 64 Year
  Sex: Male

DRUGS (4)
  1. EZETROL [Suspect]
     Indication: DYSLIPIDAEMIA
     Dosage: 10 MG, QD
     Route: 048
     Dates: start: 199902
  2. OMEGA-3 MARINE TRIGLYCERIDES [Concomitant]
  3. MICARDIS [Concomitant]
  4. VASTAREL [Concomitant]

REACTIONS (5)
  - Loss of consciousness [Unknown]
  - Cough [Not Recovered/Not Resolved]
  - Headache [Not Recovered/Not Resolved]
  - Dyspepsia [Not Recovered/Not Resolved]
  - Off label use [Unknown]
